FAERS Safety Report 5635971-9 (Version None)
Quarter: 2008Q1

REPORT INFORMATION
  Report Type: 
  Country: None (occurrence: None)
  Receive Date: 20080224
  Receipt Date: 20080219
  Transmission Date: 20080703
  Serious: Yes (Death, Other)
  Sender: FDA-Public Use
  Company Number: PHHY2008JP01695

PATIENT
  Age: 51 Year
  Sex: Female

DRUGS (1)
  1. SANDIMMUNE [Suspect]
     Indication: STEM CELL TRANSPLANT
     Dosage: 3 MG/DAY
     Route: 042
     Dates: start: 20080115

REACTIONS (9)
  - ABDOMINAL PAIN [None]
  - ANURIA [None]
  - CARDIAC FAILURE [None]
  - DISSEMINATED INTRAVASCULAR COAGULATION [None]
  - FEBRILE NEUTROPENIA [None]
  - PANCREATITIS ACUTE [None]
  - STOMATITIS [None]
  - VENOOCCLUSIVE DISEASE [None]
  - VIRAL INFECTION [None]
